FAERS Safety Report 14849489 (Version 1)
Quarter: 2018Q2

REPORT INFORMATION
  Report Type: Spontaneous
  Country: DE (occurrence: DE)
  Receive Date: 20180504
  Receipt Date: 20180504
  Transmission Date: 20180711
  Serious: Yes (Hospitalization)
  Sender: FDA-Public Use
  Company Number: DE-GEHC-2018CSU001250

PATIENT

DRUGS (1)
  1. ACCUPAQUE [Suspect]
     Active Substance: IOHEXOL
     Indication: HAEMATURIA
     Dosage: UNK UNK, SINGLE
     Route: 042
     Dates: start: 20180326, end: 20180326

REACTIONS (7)
  - Dysphagia [Unknown]
  - Throat tightness [Unknown]
  - Laryngeal oedema [Unknown]
  - Cardiovascular symptom [Unknown]
  - Chills [Unknown]
  - Dizziness [Unknown]
  - Tremor [Unknown]

NARRATIVE: CASE EVENT DATE: 20180326
